FAERS Safety Report 18258906 (Version 2)
Quarter: 2020Q4

REPORT INFORMATION
  Report Type: Spontaneous
  Country: EG (occurrence: EG)
  Receive Date: 20200911
  Receipt Date: 20201002
  Transmission Date: 20210113
  Serious: Yes (Life-Threatening)
  Sender: FDA-Public Use
  Company Number: EG-MYLANLABS-2020M1078694

PATIENT
  Sex: Female

DRUGS (4)
  1. CARBOPLATIN MYLAN [Suspect]
     Active Substance: CARBOPLATIN
     Indication: OVARIAN CANCER
     Dosage: 150MG (AUC 5) EVERY 3 WEEKS
     Route: 042
  2. TAXOL [Concomitant]
     Active Substance: PACLITAXEL
     Dosage: UNK
  3. ENZAR                              /03191601/ [Concomitant]
     Dosage: UNK
  4. CARBOPLATIN MYLAN [Suspect]
     Active Substance: CARBOPLATIN
     Indication: BREAST CANCER

REACTIONS (4)
  - Rash [Not Recovered/Not Resolved]
  - Pain [Not Recovered/Not Resolved]
  - Dyspnoea [Not Recovered/Not Resolved]
  - Drug hypersensitivity [Not Recovered/Not Resolved]

NARRATIVE: CASE EVENT DATE: 2020
